FAERS Safety Report 22143655 (Version 1)
Quarter: 2023Q1

REPORT INFORMATION
  Report Type: Spontaneous
  Country: HR (occurrence: HR)
  Receive Date: 20230327
  Receipt Date: 20230327
  Transmission Date: 20230418
  Serious: Yes (Other)
  Sender: FDA-Public Use
  Company Number: HR-009507513-2303HRV008342

PATIENT
  Sex: Male

DRUGS (1)
  1. KEYTRUDA [Suspect]
     Active Substance: PEMBROLIZUMAB
     Dosage: UNK UNK, Q3W
     Dates: start: 20230209

REACTIONS (4)
  - Autoimmune hepatitis [Unknown]
  - Diabetes mellitus [Unknown]
  - Alanine aminotransferase increased [Unknown]
  - Gastritis [Unknown]
